FAERS Safety Report 24350045 (Version 1)
Quarter: 2024Q3

REPORT INFORMATION
  Report Type: Report from Study
  Country: AT (occurrence: AT)
  Receive Date: 20240923
  Receipt Date: 20240923
  Transmission Date: 20241016
  Serious: No
  Sender: ROCHE
  Company Number: AT-ROCHE-3486796

PATIENT
  Age: 52 Year

DRUGS (2)
  1. TRASTUZUMAB [Suspect]
     Active Substance: TRASTUZUMAB
     Indication: Breast cancer
     Route: 065
     Dates: start: 20230804
  2. PERTUZUMAB [Suspect]
     Active Substance: PERTUZUMAB
     Indication: Breast cancer
     Route: 065
     Dates: start: 20230804

REACTIONS (7)
  - Sinus tachycardia [Unknown]
  - Oropharyngeal pain [Unknown]
  - Diarrhoea [Unknown]
  - Myalgia [Unknown]
  - Dermatitis acneiform [Unknown]
  - Alopecia [Unknown]
  - Flatulence [Unknown]

NARRATIVE: CASE EVENT DATE: 20230810
